FAERS Safety Report 14045960 (Version 1)
Quarter: 2017Q4

REPORT INFORMATION
  Report Type: Spontaneous
  Country: US (occurrence: US)
  Receive Date: 20171005
  Receipt Date: 20171005
  Transmission Date: 20180321
  Serious: No
  Sender: FDA-Public Use
  Company Number: US-PFIZER INC-2017425683

PATIENT
  Age: 17 Year
  Sex: Female

DRUGS (1)
  1. EUCRISA [Suspect]
     Active Substance: CRISABOROLE
     Indication: DERMATITIS ATOPIC
     Dosage: 1 DF, 2X/DAY, (APPLY A THIN LAYER TO THE AFFECTED AREA TWICE DAILY)
     Dates: start: 201709

REACTIONS (3)
  - Dermatitis atopic [Unknown]
  - Application site pain [Unknown]
  - Condition aggravated [Unknown]

NARRATIVE: CASE EVENT DATE: 201709
